FAERS Safety Report 8145732-7 (Version None)
Quarter: 2012Q1

REPORT INFORMATION
  Report Type: 
  Country: None (occurrence: None)
  Receive Date: 20120217
  Receipt Date: 20110610
  Transmission Date: 20120608
  Serious: No
  Sender: FDA-Public Use
  Company Number: US-ABBOTT-10P-163-0692214-00

PATIENT
  Sex: Female
  Weight: 68.1 kg

DRUGS (6)
  1. SIMCOR [Suspect]
     Indication: BLOOD CHOLESTEROL INCREASED
     Dosage: 500/40MG AT BEDTIME
     Dates: start: 20101123
  2. CITRICAL D [Concomitant]
     Indication: MINERAL SUPPLEMENTATION
  3. FLONASE [Concomitant]
     Indication: SINUS DISORDER
  4. VISINE EYE DROPS [Concomitant]
     Indication: PRODUCT USED FOR UNKNOWN INDICATION
  5. MELOXICAM [Concomitant]
     Indication: ARTHRALGIA
  6. FISH OIL [Concomitant]
     Indication: SUPPLEMENTATION THERAPY

REACTIONS (9)
  - GROIN PAIN [None]
  - MUSCULOSKELETAL STIFFNESS [None]
  - MYALGIA [None]
  - SKIN BURNING SENSATION [None]
  - PAIN IN EXTREMITY [None]
  - FEELING HOT [None]
  - DRUG DOSE OMISSION [None]
  - FLUSHING [None]
  - ARTHRALGIA [None]
